FAERS Safety Report 9643382 (Version 4)
Quarter: 2013Q4

REPORT INFORMATION
  Report Type: Spontaneous
  Country: US (occurrence: US)
  Receive Date: 20131024
  Receipt Date: 20131106
  Transmission Date: 20140711
  Serious: Yes (Death, Other)
  Sender: FDA-Public Use
  Company Number: US-PFIZER INC-2013275468

PATIENT
  Age: 66 Year
  Sex: Female

DRUGS (1)
  1. METHOTREXATE SODIUM [Suspect]
     Dosage: UNK

REACTIONS (6)
  - Septic shock [Fatal]
  - Pneumonia bacterial [Fatal]
  - Circumstance or information capable of leading to medication error [Unknown]
  - Toxicity to various agents [Unknown]
  - Blister [Unknown]
  - Intertrigo [Unknown]
